FAERS Safety Report 6527300-3 (Version None)
Quarter: 2010Q1

REPORT INFORMATION
  Report Type: 
  Country: None (occurrence: None)
  Receive Date: 20100105
  Receipt Date: 20090408
  Transmission Date: 20100710
  Serious: No
  Sender: FDA-Public Use
  Company Number: US-TYCO HEALTHCARE/MALLINCKRODT-T200900835

PATIENT
  Sex: Female
  Weight: 52.154 kg

DRUGS (2)
  1. OPTIMARK [Suspect]
     Indication: ANGIOGRAM
     Dosage: 30 ML (CC), SINGLE (RATE OF 2 CC/SEC)
     Route: 042
     Dates: start: 20090331, end: 20090331
  2. SODIUM CHLORIDE [Suspect]
     Indication: ANGIOGRAM
     Dosage: 50 ML (CC), SINGLE (RATE OF 2 CC/SEC)
     Route: 042
     Dates: start: 20090402, end: 20090402

REACTIONS (5)
  - DRUG ADMINISTRATION ERROR [None]
  - INJECTION SITE EXTRAVASATION [None]
  - INJECTION SITE HAEMORRHAGE [None]
  - INJECTION SITE PAIN [None]
  - INJECTION SITE SWELLING [None]
